FAERS Safety Report 6610336-1 (Version None)
Quarter: 2010Q1

REPORT INFORMATION
  Report Type: 
  Country: None (occurrence: None)
  Receive Date: 20100302
  Receipt Date: 20100222
  Transmission Date: 20100710
  Serious: Yes (Life-Threatening)
  Sender: FDA-Public Use
  Company Number: GXKR2010VN02179

PATIENT
  Sex: Male
  Weight: 11.5 kg

DRUGS (5)
  1. MEGION (NGX) [Suspect]
     Indication: BRONCHITIS
     Dosage: 1000 MG, QD
     Route: 042
     Dates: start: 20100208, end: 20100209
  2. GLUCOSE [Concomitant]
  3. ALBUTEROL [Concomitant]
  4. EFFERALGAN [Concomitant]
  5. ACEMUC [Concomitant]

REACTIONS (8)
  - BODY TEMPERATURE DECREASED [None]
  - CHILLS [None]
  - DYSPNOEA [None]
  - HEART RATE INCREASED [None]
  - HYPOTENSION [None]
  - MUSCLE SPASMS [None]
  - POLLAKIURIA [None]
  - SPUTUM INCREASED [None]
